FAERS Safety Report 12536623 (Version 2)
Quarter: 2016Q3

REPORT INFORMATION
  Report Type: Spontaneous
  Country: US (occurrence: US)
  Receive Date: 20160707
  Receipt Date: 20160805
  Transmission Date: 20161109
  Serious: No
  Sender: FDA-Public Use
  Company Number: US-PFIZER INC-2016295559

PATIENT
  Sex: Female

DRUGS (6)
  1. MORPHINE SULFATE. [Suspect]
     Active Substance: MORPHINE SULFATE
     Dosage: UNK
  2. COMPAZINE [Suspect]
     Active Substance: PROCHLORPERAZINE MALEATE
  3. DURICEF [Suspect]
     Active Substance: CEFADROXIL
  4. KEFLEX [Suspect]
     Active Substance: CEPHALEXIN
  5. IMITREX [Suspect]
     Active Substance: SUMATRIPTAN SUCCINATE
  6. CARBOCAINE [Suspect]
     Active Substance: MEPIVACAINE HYDROCHLORIDE

REACTIONS (1)
  - Drug hypersensitivity [Unknown]
